FAERS Safety Report 8760869 (Version 2)
Quarter: 2013Q4

REPORT INFORMATION
  Report Type: Spontaneous
  Country: US (occurrence: US)
  Receive Date: 20120830
  Receipt Date: 20131101
  Transmission Date: 20140711
  Serious: No
  Sender: FDA-Public Use
  Company Number: US-009507513-1208USA008755

PATIENT
  Sex: Female

DRUGS (5)
  1. EMEND [Suspect]
     Indication: PROPHYLAXIS OF NAUSEA AND VOMITING
     Dosage: UNK UNK,
     Route: 042
  2. EMEND [Suspect]
     Dosage: UNK UNK,
     Route: 042
  3. EMEND [Suspect]
     Dosage: 150 MG PER INFUSION
     Route: 042
  4. ZOFRAN [Concomitant]
     Dosage: UNK
  5. DEXAMETHASONE [Concomitant]
     Dosage: UNK

REACTIONS (1)
  - Back pain [Recovered/Resolved]
